FAERS Safety Report 19274058 (Version 5)
Quarter: 2021Q3

REPORT INFORMATION
  Report Type: Report from Study
  Country: US (occurrence: US)
  Receive Date: 20210519
  Receipt Date: 20210817
  Transmission Date: 20211014
  Serious: Yes (Hospitalization)
  Sender: FDA-Public Use
  Company Number: US-INSMED, INC.-2021-08463-US

PATIENT
  Sex: Female

DRUGS (3)
  1. ARIKAYCE [Suspect]
     Active Substance: AMIKACIN
     Indication: MYCOBACTERIAL INFECTION
     Dosage: 590 MILLIGRAM, QD
     Route: 055
     Dates: start: 2021, end: 2021
  2. AMIKACIN. [Concomitant]
     Active Substance: AMIKACIN
     Indication: PRODUCT USED FOR UNKNOWN INDICATION
     Dosage: UNK
     Route: 042
     Dates: start: 2021
  3. ARIKAYCE [Suspect]
     Active Substance: AMIKACIN
     Dosage: 590 MILLIGRAM, QD
     Route: 055
     Dates: start: 2021, end: 20210719

REACTIONS (9)
  - Weight decreased [Unknown]
  - Hospitalisation [Unknown]
  - Drug ineffective [Unknown]
  - Asthenia [Unknown]
  - Diarrhoea [Unknown]
  - Therapy interrupted [Unknown]
  - Dehydration [Unknown]
  - Feeding disorder [Unknown]
  - Productive cough [Unknown]

NARRATIVE: CASE EVENT DATE: 2021
